FAERS Safety Report 13934268 (Version 1)
Quarter: 2017Q3

REPORT INFORMATION
  Report Type: Report from Study
  Country: None (occurrence: ZA)
  Receive Date: 20170905
  Receipt Date: 20170905
  Transmission Date: 20171127
  Serious: Yes (Death, Hospitalization)
  Sender: FDA-Public Use
  Company Number: ZA-ABBVIE-17K-143-2090505-00

PATIENT
  Sex: Male

DRUGS (1)
  1. HUMIRA [Suspect]
     Active Substance: ADALIMUMAB
     Indication: CROHN^S DISEASE
     Route: 058

REACTIONS (6)
  - Spinal compression fracture [Fatal]
  - Weight decreased [Unknown]
  - Pneumonia aspiration [Fatal]
  - Quality of life decreased [Unknown]
  - Fall [Fatal]
  - Back pain [Unknown]

NARRATIVE: CASE EVENT DATE: 2017
